FAERS Safety Report 25985680 (Version 1)
Quarter: 2025Q4

REPORT INFORMATION
  Report Type: Spontaneous
  Country: US (occurrence: US)
  Receive Date: 20251031
  Receipt Date: 20251031
  Transmission Date: 20260118
  Serious: No
  Sender: TEVA
  Company Number: US-TEVA-VS-3384317

PATIENT
  Age: 71 Year
  Sex: Male
  Weight: 91.3 kg

DRUGS (16)
  1. PROAIR HFA [Suspect]
     Active Substance: ALBUTEROL SULFATE
     Indication: Interstitial lung disease
     Dosage: 1 PUFF EVERY 6 HOURS, PRN (90 ?G/ACTUATION)
     Route: 055
  2. PROAIR HFA [Suspect]
     Active Substance: ALBUTEROL SULFATE
     Indication: Chronic obstructive pulmonary disease
  3. PROAIR HFA [Suspect]
     Active Substance: ALBUTEROL SULFATE
     Indication: Wheezing
  4. PROAIR HFA [Suspect]
     Active Substance: ALBUTEROL SULFATE
     Indication: Cough
  5. TYVASO DPI [Suspect]
     Active Substance: TREPROSTINIL
     Indication: Pulmonary arterial hypertension
     Dosage: DRY POWDER
     Route: 055
     Dates: start: 20251001, end: 20251003
  6. TYVASO DPI [Suspect]
     Active Substance: TREPROSTINIL
     Indication: Pulmonary arterial hypertension
     Dosage: DRY POWDER
     Route: 055
  7. TYVASO DPI [Suspect]
     Active Substance: TREPROSTINIL
     Indication: Pulmonary arterial hypertension
     Dosage: DRY POWDER
     Route: 055
  8. TYVASO DPI [Suspect]
     Active Substance: TREPROSTINIL
     Indication: Pulmonary arterial hypertension
     Dosage: DRY POWDER
     Route: 055
  9. PROVENTIL [Suspect]
     Active Substance: ALBUTEROL
     Indication: Interstitial lung disease
     Dosage: 2.5/3 MG/ML
     Route: 055
  10. PROVENTIL HFA [Suspect]
     Active Substance: ALBUTEROL SULFATE
     Indication: Interstitial lung disease
     Dosage: 1 PUFF EVERY 6 HOURS, PRN (90 ?G/ACTUATION), INHALER
     Route: 055
  11. VENTOLIN HFA [Suspect]
     Active Substance: ALBUTEROL SULFATE
     Indication: Interstitial lung disease
     Dosage: 1 PUFF EVERY 6 HOURS, PRN (90 ?G/ACTUATION)
     Route: 055
  12. WIXELA INHUB [Suspect]
     Active Substance: FLUTICASONE PROPIONATE\SALMETEROL XINAFOATE
     Indication: Interstitial lung disease
     Dosage: INHALER, 1 PUFF, BID (250/50 ?G/PUFF)
     Route: 055
  13. Toprol XL (Metoprolol succinate) [Concomitant]
     Indication: Product used for unknown indication
     Route: 065
     Dates: start: 20250821, end: 2025
  14. Toprol XL (Metoprolol succinate) [Concomitant]
     Indication: Product used for unknown indication
     Route: 065
     Dates: start: 2025
  15. Demadex (Torasemide) [Concomitant]
     Indication: Product used for unknown indication
     Route: 065
  16. ELIQUIS [Concomitant]
     Active Substance: APIXABAN
     Indication: Product used for unknown indication
     Route: 065

REACTIONS (1)
  - Drug ineffective [Unknown]
